FAERS Safety Report 8144901-X (Version None)
Quarter: 2012Q1

REPORT INFORMATION
  Report Type: 
  Country: None (occurrence: None)
  Receive Date: 20120217
  Receipt Date: 20120209
  Transmission Date: 20120608
  Serious: Yes (Hospitalization)
  Sender: FDA-Public Use
  Company Number: NL-GLAXOSMITHKLINE-Z0011983B

PATIENT
  Sex: Female
  Weight: 83.1 kg

DRUGS (2)
  1. TOPOTECAN [Suspect]
     Indication: NEOPLASM
     Dosage: 8MG CYCLIC
     Route: 048
     Dates: start: 20110407, end: 20111026
  2. VOTRIENT [Suspect]
     Indication: NEOPLASM
     Dosage: 800MG PER DAY
     Route: 048
     Dates: start: 20110407, end: 20111028

REACTIONS (1)
  - MUSCLE SPASMS [None]
